FAERS Safety Report 14551403 (Version 4)
Quarter: 2018Q2

REPORT INFORMATION
  Report Type: Report from Study
  Country: BR (occurrence: BR)
  Receive Date: 20180220
  Receipt Date: 20180409
  Transmission Date: 20180711
  Serious: Yes (Hospitalization, Other)
  Sender: FDA-Public Use
  Company Number: BR-UCBSA-2018005952

PATIENT
  Age: 45 Year
  Sex: Female
  Weight: 60 kg

DRUGS (7)
  1. MESALAZINE [Concomitant]
     Active Substance: MESALAMINE
     Indication: INFLAMMATION
  2. AZATHIOPRINE. [Concomitant]
     Active Substance: AZATHIOPRINE
     Indication: CROHN^S DISEASE
     Dosage: 2 DF, ONCE DAILY (QD)
     Route: 048
     Dates: start: 2016
  3. BUSCOPAN [Concomitant]
     Active Substance: BUTYLSCOPOLAMINE BROMIDE
     Indication: PAIN
     Dosage: UNK
     Route: 048
     Dates: start: 20180122, end: 20180126
  4. DIPYRONE [Concomitant]
     Active Substance: DIPYRONE
     Indication: PAIN
     Dosage: UNK, AS NEEDED (PRN)
     Dates: start: 20180208
  5. CATAFLAM [Concomitant]
     Active Substance: DICLOFENAC POTASSIUM
     Indication: PAIN
     Dosage: UNK, AS NEEDED (PRN)
     Route: 048
  6. CERTOLIZUMAB PEGOL [Suspect]
     Active Substance: CERTOLIZUMAB PEGOL
     Indication: CROHN^S DISEASE
     Dosage: 400 MG, EV 4 WEEKS
     Dates: start: 20171228
  7. ASPIRINA PREVENT [Concomitant]
     Active Substance: ASPIRIN
     Indication: CROHN^S DISEASE
     Dosage: 100 MG, ONCE DAILY (QD)
     Route: 048

REACTIONS (5)
  - Intestinal stenosis [Recovered/Resolved]
  - Intestinal tuberculosis [Not Recovered/Not Resolved]
  - Procedural pain [Recovering/Resolving]
  - Weight increased [Unknown]
  - Gastrointestinal inflammation [Recovered/Resolved]

NARRATIVE: CASE EVENT DATE: 20180126
